FAERS Safety Report 4336160-0 (Version None)
Quarter: 2004Q2

REPORT INFORMATION
  Report Type: 
  Country: None (occurrence: None)
  Receive Date: 20040407
  Receipt Date: 20040330
  Transmission Date: 20050107
  Serious: Yes (Hospitalization)
  Sender: FDA-Public Use
  Company Number: GBWYE305519SEP03

PATIENT
  Age: 52 Year
  Sex: Male

DRUGS (11)
  1. RAPAMUNE [Suspect]
     Indication: IMMUNOSUPPRESSANT DRUG THERAPY
     Dosage: 5 MG 1X PER 1 DAY ORAL
     Route: 048
     Dates: start: 20020829
  2. ALFACALCIDOL (ALFACALCIDOL) [Concomitant]
  3. SIMVASTATIN [Concomitant]
  4. ADALAT [Concomitant]
  5. DOXAZOSIN (DOXAZOSIN) [Concomitant]
  6. ASPIRIN [Concomitant]
  7. FUROSEMIDE [Concomitant]
  8. LOSEC (OMEPRAZOLE) [Concomitant]
  9. NASONEX [Concomitant]
  10. ATORVASTATIN (ATORVASTATIN) [Concomitant]
  11. BENDROFLUAZIDE (BENDROFLUMETHIAZIDE) [Concomitant]

REACTIONS (7)
  - ADENOIDITIS [None]
  - EPIGLOTTITIS [None]
  - GRANULOMA [None]
  - HOARSENESS [None]
  - NASOPHARYNGITIS [None]
  - VOCAL CORD DISORDER [None]
  - VOCAL CORD THICKENING [None]
